FAERS Safety Report 6235776-4 (Version None)
Quarter: 2009Q2

REPORT INFORMATION
  Report Type: 
  Country: None (occurrence: None)
  Receive Date: 20090617
  Receipt Date: 20090617
  Transmission Date: 20091009
  Serious: No
  Sender: FDA-Public Use
  Company Number: None

PATIENT
  Age: 66 Year
  Sex: Male
  Weight: 87.9978 kg

DRUGS (1)
  1. ZICAM ADULT [Suspect]
     Indication: VIRAL INFECTION
     Dosage: SWAB IN NOSTRILS BOTH SIDES 3-4 TIMES DAILEY NASAL
     Route: 045

REACTIONS (1)
  - ANOSMIA [None]
